FAERS Safety Report 18746190 (Version 2)
Quarter: 2021Q2

REPORT INFORMATION
  Report Type: Spontaneous
  Country: US (occurrence: US)
  Receive Date: 20210115
  Receipt Date: 20210409
  Transmission Date: 20210717
  Serious: No
  Sender: FDA-Public Use
  Company Number: US-009507513-2101USA004635

PATIENT
  Sex: Female

DRUGS (10)
  1. TUCATINIB [Suspect]
     Active Substance: TUCATINIB
     Dosage: UNK
     Route: 065
  2. TUCATINIB [Suspect]
     Active Substance: TUCATINIB
     Indication: BREAST CANCER FEMALE
     Dosage: UNK
     Route: 065
  3. XELODA [Suspect]
     Active Substance: CAPECITABINE
     Dosage: 2 DOSAGE FORM, BID
     Route: 065
  4. XELODA [Suspect]
     Active Substance: CAPECITABINE
     Indication: BREAST CANCER FEMALE
     Dosage: 3 DOSAGE FORM, BID
     Route: 065
  5. PROTONIX [Concomitant]
     Active Substance: PANTOPRAZOLE SODIUM
     Dosage: UNK
  6. TUCATINIB [Suspect]
     Active Substance: TUCATINIB
     Dosage: UNK
     Route: 065
  7. MIRTAZAPINE. [Suspect]
     Active Substance: MIRTAZAPINE
     Dosage: UNK
     Route: 065
  8. HERCEPTIN [Concomitant]
     Active Substance: TRASTUZUMAB
     Dosage: UNK
  9. TUCATINIB [Suspect]
     Active Substance: TUCATINIB
     Dosage: UNK
     Route: 065
  10. TUCATINIB [Suspect]
     Active Substance: TUCATINIB
     Dosage: UNK
     Route: 065

REACTIONS (17)
  - Sleep disorder [Unknown]
  - Laboratory test abnormal [Unknown]
  - Constipation [Unknown]
  - Hypotension [Unknown]
  - Muscle spasms [Unknown]
  - Macular degeneration [Unknown]
  - Drug interaction [Unknown]
  - Diarrhoea [Unknown]
  - Gastrointestinal sounds abnormal [Unknown]
  - Transfusion [Unknown]
  - Skin exfoliation [Recovering/Resolving]
  - Eye disorder [Unknown]
  - Insomnia [Unknown]
  - Emotional disorder [Unknown]
  - Pulmonary mass [Unknown]
  - Ejection fraction [Unknown]
  - Decreased appetite [Unknown]
